FAERS Safety Report 16784902 (Version 1)
Quarter: 2019Q3

REPORT INFORMATION
  Report Type: Spontaneous
  Country: US (occurrence: US)
  Receive Date: 20190909
  Receipt Date: 20190909
  Transmission Date: 20191005
  Serious: Yes (Hospitalization)
  Sender: FDA-Public Use
  Company Number: US-STRIDES ARCOLAB LIMITED-2019SP007296

PATIENT
  Age: 7 Year
  Sex: Male

DRUGS (2)
  1. ETHOSUXIMIDE. [Suspect]
     Active Substance: ETHOSUXIMIDE
     Indication: PETIT MAL EPILEPSY
     Dosage: 250 MG, DAILY
     Route: 065
  2. AZITHROMYCIN ANHYDROUS. [Concomitant]
     Active Substance: AZITHROMYCIN ANHYDROUS
     Indication: ATYPICAL PNEUMONIA
     Dosage: UNK
     Route: 065

REACTIONS (20)
  - Pyrexia [Recovered/Resolved]
  - Hepatomegaly [Recovered/Resolved]
  - Face oedema [Recovered/Resolved]
  - Lymphadenopathy mediastinal [Recovered/Resolved]
  - Lymphadenopathy [Recovered/Resolved]
  - Drug reaction with eosinophilia and systemic symptoms [Recovered/Resolved]
  - Abdominal tenderness [Recovered/Resolved]
  - Hilar lymphadenopathy [Recovered/Resolved]
  - Cheilitis [Recovered/Resolved]
  - Eosinophilia [Recovered/Resolved]
  - Rash [Recovered/Resolved]
  - Rash pruritic [Recovered/Resolved]
  - Lymph node palpable [Recovered/Resolved]
  - Tachycardia [Recovered/Resolved]
  - Lethargy [Recovered/Resolved]
  - Lymphocytosis [Recovered/Resolved]
  - Conjunctival hyperaemia [Recovered/Resolved]
  - Rash erythematous [Recovered/Resolved]
  - Leukopenia [Recovered/Resolved]
  - Swelling face [Recovered/Resolved]
